FAERS Safety Report 5712162-4 (Version None)
Quarter: 2008Q2

REPORT INFORMATION
  Report Type: 
  Country: None (occurrence: None)
  Receive Date: 20080422
  Receipt Date: 20080414
  Transmission Date: 20081010
  Serious: Yes (Hospitalization)
  Sender: FDA-Public Use
  Company Number: US-BAYER-200714889NA

PATIENT
  Age: 63 Year
  Sex: Male

DRUGS (4)
  1. BETASERON [Suspect]
     Indication: MULTIPLE SCLEROSIS
     Route: 058
     Dates: start: 19940822, end: 20020707
  2. BETASERON [Suspect]
     Route: 058
     Dates: start: 20030913, end: 20031011
  3. BETASERON [Suspect]
     Route: 058
     Dates: start: 20041227, end: 20051219
  4. BETASERON [Suspect]
     Dosage: TOTAL DAILY DOSE: 4 MIU
     Route: 058
     Dates: start: 20060104

REACTIONS (3)
  - NOSOCOMIAL INFECTION [None]
  - SKIN ULCER [None]
  - STAPHYLOCOCCAL INFECTION [None]
